FAERS Safety Report 10248819 (Version 1)
Quarter: 2014Q2

REPORT INFORMATION
  Report Type: Spontaneous
  Country: US (occurrence: US)
  Receive Date: 20140620
  Receipt Date: 20140620
  Transmission Date: 20141212
  Serious: No
  Sender: FDA-Public Use
  Company Number: US-TEVA-489553USA

PATIENT
  Sex: Female

DRUGS (1)
  1. COPAXONE  40MG [Suspect]
     Indication: MULTIPLE SCLEROSIS

REACTIONS (2)
  - Injection site pain [Unknown]
  - Injection site urticaria [Unknown]
